FAERS Safety Report 4434342-0 (Version None)
Quarter: 2004Q3

REPORT INFORMATION
  Report Type: 
  Country: None (occurrence: None)
  Receive Date: 20040825
  Receipt Date: 20040816
  Transmission Date: 20050211
  Serious: Yes (Other)
  Sender: FDA-Public Use
  Company Number: 200414027BCC

PATIENT
  Age: 61 Year
  Sex: Female
  Weight: 110 kg

DRUGS (8)
  1. ASPIRIN [Suspect]
     Indication: MYOCARDIAL INFARCTION
     Dosage: ORAL
     Route: 048
     Dates: start: 20000101
  2. ASPIRIN [Suspect]
     Indication: PROPHYLAXIS
     Dosage: ORAL
     Route: 048
     Dates: start: 20000101
  3. ISOSORBIDE [Concomitant]
  4. CELEBREX [Concomitant]
  5. PLAVIX [Concomitant]
  6. LIPITOR [Concomitant]
  7. VITAMIN C [Concomitant]
  8. ATENOLOL [Concomitant]

REACTIONS (2)
  - DRUG INEFFECTIVE [None]
  - MYOCARDIAL INFARCTION [None]
